FAERS Safety Report 16403756 (Version 3)
Quarter: 2019Q2

REPORT INFORMATION
  Report Type: Spontaneous
  Country: US (occurrence: US)
  Receive Date: 20190607
  Receipt Date: 20190621
  Transmission Date: 20190711
  Serious: Yes (Other)
  Sender: FDA-Public Use
  Company Number: US-SUNOVION-2019SUN002295

PATIENT
  Age: 91 Year
  Sex: Female
  Weight: 68.03 kg

DRUGS (5)
  1. LEVALBUTEROL. [Concomitant]
     Active Substance: LEVALBUTEROL
     Indication: CHRONIC OBSTRUCTIVE PULMONARY DISEASE
     Dosage: UNK UNK, QID
     Route: 055
     Dates: start: 20190529
  2. LONHALA MAGNAIR [Suspect]
     Active Substance: GLYCOPYRROLATE
     Indication: CHRONIC OBSTRUCTIVE PULMONARY DISEASE
     Dosage: 25 ?G
     Route: 055
     Dates: start: 201904, end: 20190529
  3. IPRATROPIUM [Concomitant]
     Active Substance: IPRATROPIUM
  4. OXYGEN. [Concomitant]
     Active Substance: OXYGEN
  5. LONHALA MAGNAIR [Suspect]
     Active Substance: GLYCOPYRROLATE
     Dosage: UNK
     Route: 055
     Dates: start: 201906

REACTIONS (4)
  - Vision blurred [Not Recovered/Not Resolved]
  - Hallucination [Not Recovered/Not Resolved]
  - Macular degeneration [Not Recovered/Not Resolved]
  - Visual impairment [Not Recovered/Not Resolved]

NARRATIVE: CASE EVENT DATE: 201905
